FAERS Safety Report 7887732-8 (Version None)
Quarter: 2011Q4

REPORT INFORMATION
  Report Type: 
  Country: None (occurrence: None)
  Receive Date: 20111101
  Receipt Date: 20111020
  Transmission Date: 20120403
  Serious: Yes (Other)
  Sender: FDA-Public Use
  Company Number: 2011SP050893

PATIENT
  Age: 57 Year
  Sex: Female

DRUGS (4)
  1. ANAFRANIL [Concomitant]
  2. SAPHRIS [Suspect]
     Indication: DEPRESSION
     Dosage: 5 MG; 10 MG;BID
  3. SAPHRIS [Suspect]
     Indication: BIPOLAR DISORDER
     Dosage: 5 MG; 10 MG;BID
  4. LEXAPRO [Concomitant]

REACTIONS (1)
  - MANIA [None]
